FAERS Safety Report 14659870 (Version 1)
Quarter: 2018Q1

REPORT INFORMATION
  Report Type: Spontaneous
  Country: US (occurrence: US)
  Receive Date: 20180320
  Receipt Date: 20180320
  Transmission Date: 20180509
  Serious: Yes (Other)
  Sender: FDA-Public Use
  Company Number: US-SA-2018SA079041

PATIENT
  Sex: Male

DRUGS (2)
  1. PLAVIX [Suspect]
     Active Substance: CLOPIDOGREL BISULFATE
     Route: 048
  2. ELIQUIS [Suspect]
     Active Substance: APIXABAN
     Route: 065
     Dates: start: 201711

REACTIONS (2)
  - Off label use [Unknown]
  - Surgery [Unknown]
